FAERS Safety Report 24192291 (Version 1)
Quarter: 2024Q3

REPORT INFORMATION
  Report Type: Spontaneous
  Country: US (occurrence: US)
  Receive Date: 20240809
  Receipt Date: 20240809
  Transmission Date: 20241017
  Serious: Yes (Other)
  Sender: APOTEX
  Company Number: US-APOTEX-2024AP009119

PATIENT
  Age: 58 Year
  Sex: Male

DRUGS (2)
  1. MELPHALAN [Suspect]
     Active Substance: MELPHALAN
     Indication: Bone marrow conditioning regimen
     Dosage: 200 MILLIGRAM/SQ. METER, INFUSION OVER ONE HOUR
     Route: 065
  2. MELPHALAN [Suspect]
     Active Substance: MELPHALAN
     Indication: Chemotherapy

REACTIONS (5)
  - Oesophageal stenosis [Recovering/Resolving]
  - Mucosal inflammation [Recovering/Resolving]
  - Oesophagitis [Recovering/Resolving]
  - Ulcer [Recovering/Resolving]
  - Scar [Recovering/Resolving]
